FAERS Safety Report 17329363 (Version 1)
Quarter: 2020Q1

REPORT INFORMATION
  Report Type: Spontaneous
  Country: US (occurrence: US)
  Receive Date: 20200127
  Receipt Date: 20200127
  Transmission Date: 20200409
  Serious: No
  Sender: FDA-Public Use
  Company Number: US-SA-2020SA020804

PATIENT
  Age: 45 Year
  Sex: Male

DRUGS (6)
  1. VITAMIN D3 [Concomitant]
     Active Substance: CHOLECALCIFEROL
  2. FISH OIL [Concomitant]
     Active Substance: FISH OIL
  3. MAGNESIUM [Concomitant]
     Active Substance: MAGNESIUM
  4. ZINC. [Concomitant]
     Active Substance: ZINC
  5. MULTIVIT [VITAMINS NOS] [Concomitant]
  6. DUPIXENT [Suspect]
     Active Substance: DUPILUMAB
     Indication: DERMATITIS ATOPIC
     Dosage: 300 MG, QOW
     Route: 058
     Dates: start: 20191017

REACTIONS (2)
  - Dermatitis atopic [Not Recovered/Not Resolved]
  - Rash [Not Recovered/Not Resolved]

NARRATIVE: CASE EVENT DATE: 201911
